FAERS Safety Report 11930206 (Version 1)
Quarter: 2016Q1

REPORT INFORMATION
  Report Type: Spontaneous
  Country: PL (occurrence: PL)
  Receive Date: 20160120
  Receipt Date: 20160120
  Transmission Date: 20160526
  Serious: Yes (Other)
  Sender: FDA-Public Use
  Company Number: PHHY2016PL005350

PATIENT
  Age: 57 Year
  Sex: Female

DRUGS (6)
  1. SULFAMETHOXAZOLE AND TRIMETHOPRIM [Suspect]
     Active Substance: SULFAMETHOXAZOLE\TRIMETHOPRIM
     Indication: ANTIFUNGAL PROPHYLAXIS
     Route: 065
  2. CYCLOPHOSPHAMIDE. [Suspect]
     Active Substance: CYCLOPHOSPHAMIDE
     Dosage: 13 G, UNK
     Route: 065
  3. CYCLOPHOSPHAMIDE. [Suspect]
     Active Substance: CYCLOPHOSPHAMIDE
     Dosage: 4 G, UNK
     Route: 031
  4. CYCLOPHOSPHAMIDE. [Suspect]
     Active Substance: CYCLOPHOSPHAMIDE
     Indication: GRANULOMATOSIS WITH POLYANGIITIS
     Dosage: 15 MG, QW3
     Route: 031
  5. PREDNISONE. [Suspect]
     Active Substance: PREDNISONE
     Indication: GRANULOMATOSIS WITH POLYANGIITIS
     Dosage: 1 MG/KG, QW3
     Route: 048
  6. RITUXIMAB [Suspect]
     Active Substance: RITUXIMAB
     Indication: GRANULOMATOSIS WITH POLYANGIITIS
     Dosage: 1 G, QW2
     Route: 065

REACTIONS (18)
  - Exercise tolerance decreased [Unknown]
  - Nasal septum perforation [Unknown]
  - Asthenia [Unknown]
  - Deafness [Unknown]
  - Nausea [Unknown]
  - Sarcoidosis [Unknown]
  - Rales [Unknown]
  - Eye disorder [Unknown]
  - Tuberculosis [Unknown]
  - Neoplasm malignant [Unknown]
  - Hearing disability [Unknown]
  - Dyspnoea [Unknown]
  - Cough [Unknown]
  - Stridor [Unknown]
  - Ulcer [Unknown]
  - Disease progression [Unknown]
  - Granulomatosis with polyangiitis [Unknown]
  - Malaise [Unknown]
